FAERS Safety Report 7637813-9 (Version None)
Quarter: 2011Q3

REPORT INFORMATION
  Report Type: 
  Country: None (occurrence: None)
  Receive Date: 20110718
  Receipt Date: 20110707
  Transmission Date: 20111222
  Serious: Yes (Other)
  Sender: FDA-Public Use
  Company Number: DKLU1071892

PATIENT
  Sex: Female

DRUGS (1)
  1. PANHEMATIN [Suspect]
     Indication: PORPHYRIA
     Dosage: INTRAVENOUS (NOT OTHERWISE SPECIFIED)
     Route: 042

REACTIONS (1)
  - HEPATIC FAILURE [None]
